FAERS Safety Report 7239374 (Version 4)
Quarter: 2013Q2

REPORT INFORMATION
  Report Type: Report from Study
  Country: GB (occurrence: GB)
  Receive Date: 20100107
  Receipt Date: 20130515
  Transmission Date: 20140414
  Serious: Yes (Hospitalization)
  Sender: FDA-Public Use
  Company Number: GB-BRISTOL-MYERS SQUIBB COMPANY-14922041

PATIENT
  Age: 58 Year
  Sex: Female

DRUGS (8)
  1. SPRYCEL [Suspect]
     Indication: CHRONIC MYELOID LEUKAEMIA
     Dosage: INTERRUPTED ON 20DEC09,RESTARTED ON 24DEC09
     Route: 048
     Dates: start: 20091124
  2. SERTRALINE [Concomitant]
     Indication: ANTIDEPRESSANT THERAPY
     Route: 048
     Dates: start: 2006
  3. CALCICHEW [Concomitant]
     Indication: OSTEOPOROSIS
     Dosage: 2DOSAGEFORM-2TABS
     Route: 048
     Dates: start: 2008
  4. CO-CODAMOL [Concomitant]
     Indication: ANALGESIC THERAPY
     Dosage: 1DOSAGEFORM=30/500 UNITS NOS
     Route: 048
  5. ALLOPURINOL [Concomitant]
     Indication: TUMOUR LYSIS SYNDROME
     Route: 048
     Dates: start: 20090516
  6. BUTRANS [Concomitant]
     Indication: ANALGESIC THERAPY
     Route: 048
     Dates: start: 2007
  7. ORAMORPH [Concomitant]
     Indication: ANALGESIC THERAPY
     Route: 048
     Dates: start: 20091002
  8. CYCLIZINE [Concomitant]
     Indication: VOMITING
     Route: 048
     Dates: start: 2009

REACTIONS (3)
  - Dehydration [Recovered/Resolved]
  - Diarrhoea [Recovered/Resolved]
  - Abdominal discomfort [Recovered/Resolved]
